FAERS Safety Report 4827929-4 (Version None)
Quarter: 2005Q4

REPORT INFORMATION
  Report Type: 
  Country: None (occurrence: None)
  Receive Date: 20051115
  Receipt Date: 20051107
  Transmission Date: 20060501
  Serious: Yes (Other)
  Sender: FDA-Public Use
  Company Number: 2005UW16932

PATIENT
  Sex: Male

DRUGS (1)
  1. NAROPIN [Suspect]
     Route: 008

REACTIONS (2)
  - ANAESTHETIC COMPLICATION [None]
  - DELAYED RECOVERY FROM ANAESTHESIA [None]
